FAERS Safety Report 19969740 (Version 2)
Quarter: 2021Q4

REPORT INFORMATION
  Report Type: Spontaneous
  Country: GB (occurrence: GB)
  Receive Date: 20211019
  Receipt Date: 20211109
  Transmission Date: 20220303
  Serious: Yes (Hospitalization, Other)
  Sender: FDA-Public Use
  Company Number: GB-PFIZER INC-202101340603

PATIENT
  Age: 75 Year
  Sex: Male

DRUGS (2)
  1. NEURONTIN [Suspect]
     Active Substance: GABAPENTIN
     Dosage: 300 MG, 3X/DAY
  2. PREGABALIN [Concomitant]
     Active Substance: PREGABALIN
     Dosage: 25 MG, 2X/DAY

REACTIONS (7)
  - Cerebrovascular accident [Unknown]
  - Transient ischaemic attack [Unknown]
  - Heart rate abnormal [Unknown]
  - Malaise [Unknown]
  - Visual impairment [Unknown]
  - Confusional state [Unknown]
  - Intentional product misuse [Unknown]
